FAERS Safety Report 7679765-1 (Version None)
Quarter: 2011Q3

REPORT INFORMATION
  Report Type: 
  Country: None (occurrence: None)
  Receive Date: 20110812
  Receipt Date: 20110801
  Transmission Date: 20111222
  Serious: No
  Sender: FDA-Public Use
  Company Number: US-JNJFOC-20110801306

PATIENT
  Sex: Male

DRUGS (5)
  1. DEPAKOTE ER [Concomitant]
     Route: 048
  2. KLONOPIN [Concomitant]
     Route: 048
  3. AMBIEN [Concomitant]
     Indication: SLEEP DISORDER
     Route: 048
  4. INVEGA SUSTENNA [Suspect]
     Indication: SCHIZOAFFECTIVE DISORDER
     Route: 030
     Dates: start: 20110201
  5. SAPHRIS [Concomitant]

REACTIONS (2)
  - DRUG DOSE OMISSION [None]
  - SYRINGE ISSUE [None]
